FAERS Safety Report 5268586-5 (Version None)
Quarter: 2007Q1

REPORT INFORMATION
  Report Type: 
  Country: None (occurrence: None)
  Receive Date: 20070314
  Receipt Date: 20070308
  Transmission Date: 20070707
  Serious: Yes (Death)
  Sender: FDA-Public Use
  Company Number: 163-21880-07020533

PATIENT
  Age: 96 Year
  Sex: Female

DRUGS (1)
  1. REVLIMID [Suspect]
     Indication: MYELODYSPLASTIC SYNDROME
     Dosage: 5 MG, 1 IN 1 D, ORAL
     Route: 048
     Dates: start: 20060701, end: 20060701

REACTIONS (2)
  - GENERAL PHYSICAL HEALTH DETERIORATION [None]
  - REFUSAL OF TREATMENT BY PATIENT [None]
